FAERS Safety Report 4731926-7 (Version None)
Quarter: 2005Q3

REPORT INFORMATION
  Report Type: 
  Country: None (occurrence: None)
  Receive Date: 20050802
  Receipt Date: 20050802
  Transmission Date: 20060218
  Serious: Yes (Hospitalization)
  Sender: FDA-Public Use
  Company Number: None

PATIENT
  Age: 44 Year
  Sex: Female
  Weight: 56.246 kg

DRUGS (1)
  1. OXYCODONE HCL [Suspect]
     Indication: PAIN
     Dosage: 12-14 MG EVERY 3-4 HRS
     Dates: end: 20030101

REACTIONS (13)
  - ASTHENIA [None]
  - BACK PAIN [None]
  - CHROMATURIA [None]
  - DIZZINESS [None]
  - FATIGUE [None]
  - HYPERTENSION [None]
  - INFLUENZA LIKE ILLNESS [None]
  - MYALGIA [None]
  - PHARMACEUTICAL PRODUCT COMPLAINT [None]
  - PYREXIA [None]
  - SINUS TACHYCARDIA [None]
  - URINE ODOUR ABNORMAL [None]
  - VISUAL DISTURBANCE [None]
